FAERS Safety Report 20187565 (Version 2)
Quarter: 2021Q4

REPORT INFORMATION
  Report Type: Spontaneous
  Country: KR (occurrence: KR)
  Receive Date: 20211215
  Receipt Date: 20211221
  Transmission Date: 20220303
  Serious: Yes (Other)
  Sender: FDA-Public Use
  Company Number: KR-CELGENE-KOR-20211203147

PATIENT
  Age: 68 Year
  Sex: Female

DRUGS (19)
  1. AZACITIDINE [Suspect]
     Active Substance: AZACITIDINE
     Indication: Myelodysplastic syndrome
     Route: 058
     Dates: start: 20210830, end: 20210929
  2. VENETOCLAX [Suspect]
     Active Substance: VENETOCLAX
     Indication: Myelodysplastic syndrome
     Route: 065
  3. FENOFIBRATE [Concomitant]
     Active Substance: FENOFIBRATE
     Indication: Prophylaxis
     Dosage: 160 MILLIGRAM
     Route: 048
     Dates: start: 2000
  4. ZOLPID [Concomitant]
     Indication: Prophylaxis
     Dosage: 10 MILLIGRAM
     Route: 048
     Dates: start: 2000
  5. MINOXIDIL [Concomitant]
     Active Substance: MINOXIDIL
     Indication: Hypertension
     Route: 048
     Dates: start: 202012
  6. Ginkg-F [Concomitant]
     Indication: Hypertension
     Route: 048
     Dates: start: 202012
  7. METHYLPREDNISOLONE [Concomitant]
     Active Substance: METHYLPREDNISOLONE
     Indication: Allergy prophylaxis
     Route: 048
     Dates: start: 202008
  8. Bepostar [Concomitant]
     Indication: Allergy prophylaxis
     Route: 048
     Dates: start: 202008
  9. ALLERION [Concomitant]
     Indication: Allergy prophylaxis
     Route: 048
     Dates: start: 202008
  10. CIMETIDINE [Concomitant]
     Active Substance: CIMETIDINE
     Indication: Gastritis prophylaxis
     Route: 048
     Dates: start: 202008
  11. OTILLEN F [Concomitant]
     Indication: Gastritis prophylaxis
     Route: 048
     Dates: start: 202008
  12. Momenta [Concomitant]
     Indication: Hypersensitivity
     Route: 061
     Dates: start: 202008
  13. KYTRIL [Concomitant]
     Active Substance: GRANISETRON HYDROCHLORIDE
     Indication: Prophylaxis of nausea and vomiting
     Route: 048
     Dates: start: 20200830
  14. LOSARTAN POTASSIUM [Concomitant]
     Active Substance: LOSARTAN POTASSIUM
     Indication: Hypertension
     Route: 048
     Dates: start: 2000
  15. CHLORPHENIRAMINE MALEATE [Concomitant]
     Active Substance: CHLORPHENIRAMINE MALEATE
     Indication: Hypersensitivity
     Dosage: 4 MILLIGRAM
     Route: 028
     Dates: start: 20210903, end: 20210903
  16. PREDNISOLONE [Concomitant]
     Active Substance: PREDNISOLONE
     Indication: Hypersensitivity
     Dosage: 5 MILLIGRAM
     Route: 048
     Dates: start: 20210903
  17. XYZAL [Concomitant]
     Active Substance: LEVOCETIRIZINE DIHYDROCHLORIDE
     Indication: Hypersensitivity
     Dosage: 5 MILLIGRAM
     Route: 048
     Dates: start: 20210903
  18. Mag O [Concomitant]
     Indication: Constipation
     Dosage: 1500 MILLIGRAM
     Route: 048
     Dates: start: 20210903
  19. ACYCLOVIR [Concomitant]
     Active Substance: ACYCLOVIR
     Indication: Infection prophylaxis
     Dosage: 800 MILLIGRAM
     Route: 048
     Dates: start: 20210915

REACTIONS (1)
  - Transformation to acute myeloid leukaemia [Not Recovered/Not Resolved]

NARRATIVE: CASE EVENT DATE: 20210930
